FAERS Safety Report 9171072 (Version 2)
Quarter: 2013Q2

REPORT INFORMATION
  Report Type: Spontaneous
  Country: US (occurrence: None)
  Receive Date: 20130311
  Receipt Date: 20130415
  Transmission Date: 20140414
  Serious: Yes (Disabling, Other)
  Sender: FDA-Public Use
  Company Number: ACO_34364_2013

PATIENT
  Sex: Female
  Weight: 80.7 kg

DRUGS (9)
  1. AMPYRA [Suspect]
     Indication: GAIT DISTURBANCE
     Route: 048
     Dates: end: 20130225
  2. AMPYRA [Suspect]
     Indication: ASTHENIA
     Route: 048
     Dates: end: 20130225
  3. COUMADIN (WARFARIN SODIUM) [Concomitant]
  4. BACLOFEN (BACLOFEN) (BACLOFEN) [Concomitant]
  5. MELOXICAM (MELOXICAM) [Concomitant]
  6. TIZANIDINE (TIZANIDINE HYDROCHLORIDE) [Concomitant]
  7. BUSPIRONE (BUSPIRONE) [Concomitant]
  8. VITAMIN D (ERGOCALCIFEROL) [Concomitant]
  9. TRAMADOL (TRAMADOL HYDROCHLORIDE) [Concomitant]

REACTIONS (6)
  - Multiple sclerosis [None]
  - Abasia [None]
  - Dysstasia [None]
  - Gait disturbance [None]
  - Drug ineffective [None]
  - Multiple sclerosis [None]
